FAERS Safety Report 11306617 (Version 1)
Quarter: 2015Q3

REPORT INFORMATION
  Report Type: Spontaneous
  Country: DE (occurrence: DE)
  Receive Date: 20150723
  Receipt Date: 20150723
  Transmission Date: 20151125
  Serious: Yes (Hospitalization)
  Sender: FDA-Public Use
  Company Number: GXKR2015DE003433

PATIENT

DRUGS (8)
  1. XARELTO [Suspect]
     Active Substance: RIVAROXABAN
     Indication: ATRIAL FIBRILLATION
     Dosage: 20 MG, QD
     Route: 048
     Dates: start: 20150508
  2. FLUVASTATIN [Concomitant]
     Active Substance: FLUVASTATIN SODIUM
     Dosage: 0-0-1
  3. TORASEMID [Concomitant]
     Active Substance: TORSEMIDE
     Dosage: 1-0-0
  4. BISOPROLOL [Concomitant]
     Active Substance: BISOPROLOL
     Dosage: 1-0-0
  5. GLEPARK//PRAMIPEXOLE DIHYDROCHLORIDE [Concomitant]
     Dosage: 0-0-1/2
  6. ACETYLSALICYLIC ACID [Suspect]
     Active Substance: ASPIRIN
     Indication: CORONARY ARTERY DISEASE
     Dosage: 100 MG, QD
     Route: 048
     Dates: start: 20141105
  7. SPIRONOLACTON [Concomitant]
     Active Substance: SPIRONOLACTONE
     Dosage: 1/2-0-0
  8. EXFORGE HCT [Concomitant]
     Active Substance: AMLODIPINE BESYLATE\HYDROCHLOROTHIAZIDE\VALSARTAN
     Dosage: 1/2-0-0

REACTIONS (2)
  - Haemoglobin decreased [Recovering/Resolving]
  - Gastrointestinal haemorrhage [Recovering/Resolving]

NARRATIVE: CASE EVENT DATE: 20150528
